FAERS Safety Report 5323963-9 (Version None)
Quarter: 2007Q2

REPORT INFORMATION
  Report Type: 
  Country: None (occurrence: None)
  Receive Date: 20070509
  Receipt Date: 20070509
  Transmission Date: 20071010
  Serious: Yes (Hospitalization, Other)
  Sender: FDA-Public Use
  Company Number: None

PATIENT
  Age: 49 Year
  Sex: Female
  Weight: 90.7194 kg

DRUGS (1)
  1. ZELNORM [Suspect]
     Indication: CONSTIPATION
     Dosage: TWICE A DAY
     Dates: start: 20050506, end: 20070508

REACTIONS (4)
  - DIZZINESS [None]
  - DYSPNOEA [None]
  - RECTAL HAEMORRHAGE [None]
  - SYNCOPE [None]
